FAERS Safety Report 9445212 (Version 1)
Quarter: 2013Q3

REPORT INFORMATION
  Report Type: Report from Study
  Country: US (occurrence: US)
  Receive Date: 20130807
  Receipt Date: 20130807
  Transmission Date: 20140515
  Serious: Yes (Life-Threatening, Hospitalization)
  Sender: FDA-Public Use
  Company Number: US-ACTELION-A-NJ2013-86657

PATIENT
  Age: 70 Year
  Sex: Female

DRUGS (21)
  1. TRACLEER [Suspect]
     Indication: PULMONARY ARTERIAL HYPERTENSION
     Dosage: 125
     Route: 048
     Dates: start: 201102
  2. TRACLEER [Suspect]
     Dosage: 62.5
     Route: 048
     Dates: start: 201101, end: 201102
  3. REMODULIN [Suspect]
  4. VENTAVIS [Concomitant]
     Indication: PULMONARY ARTERIAL HYPERTENSION
     Dosage: UNK, 6 TIMES DAILY
     Route: 055
     Dates: start: 20130524
  5. VENTAVIS [Concomitant]
     Dosage: UNK, 6 X DAY
     Route: 055
     Dates: start: 20100710, end: 20130514
  6. PREDNISONE [Concomitant]
  7. LASIX [Concomitant]
  8. METOPROLOL [Concomitant]
  9. VERAPAMIL [Concomitant]
  10. ROFLUMILAST [Concomitant]
  11. SINGULAIR [Concomitant]
  12. PROTONIX [Concomitant]
  13. POTASSIUM [Concomitant]
  14. XARELTO [Concomitant]
  15. SPIRIVA [Concomitant]
  16. ADVAIR [Concomitant]
  17. XOPENEX [Concomitant]
  18. ZYRTEC DUO [Concomitant]
  19. MUCINEX [Concomitant]
  20. ICAPS [Concomitant]
  21. OXYGEN [Concomitant]

REACTIONS (3)
  - Thrombosis in device [Recovered/Resolved]
  - Oedema peripheral [Recovering/Resolving]
  - Fatigue [Recovering/Resolving]
